FAERS Safety Report 5533597-9 (Version None)
Quarter: 2007Q4

REPORT INFORMATION
  Report Type: 
  Country: None (occurrence: None)
  Receive Date: 20071204
  Receipt Date: 20071123
  Transmission Date: 20080405
  Serious: Yes (Hospitalization)
  Sender: FDA-Public Use
  Company Number: US-KINGPHARMUSA00001-K200701515

PATIENT

DRUGS (4)
  1. ALTACE [Suspect]
     Dosage: 10 MG, QD
     Route: 048
     Dates: end: 20070915
  2. KARDEGIC /00002703/ [Suspect]
     Dosage: 75 MG, QD
     Route: 048
     Dates: end: 20070915
  3. CORDARONE /00133102/ [Suspect]
     Dosage: 200 MG, 5 TIMES A WEEK
     Route: 048
     Dates: end: 20071005
  4. ZOCOR [Suspect]
     Dosage: 40 MG, QD
     Route: 048
     Dates: end: 20070920

REACTIONS (7)
  - COUGH [None]
  - DYSPNOEA [None]
  - ENTROPION [None]
  - EPISTAXIS [None]
  - GENERAL PHYSICAL HEALTH DETERIORATION [None]
  - LUNG DISORDER [None]
  - THROMBOCYTOPENIA [None]
